FAERS Safety Report 6151183-7 (Version None)
Quarter: 2009Q2

REPORT INFORMATION
  Report Type: 
  Country: None (occurrence: None)
  Receive Date: 20090408
  Receipt Date: 20090408
  Transmission Date: 20091009
  Serious: Yes (Other)
  Sender: FDA-Public Use
  Company Number: None

PATIENT
  Age: 8 Year
  Sex: Male
  Weight: 31.7518 kg

DRUGS (2)
  1. SINGULAIR [Suspect]
     Indication: ASTHMA
     Dosage: 1 CHEWABLE TABLET ONCE A DAY PO
     Route: 048
  2. SINGULAIR [Suspect]
     Indication: MULTIPLE ALLERGIES
     Dosage: 1 CHEWABLE TABLET ONCE A DAY PO
     Route: 048

REACTIONS (4)
  - DRY EYE [None]
  - DYSKINESIA [None]
  - EXCESSIVE EYE BLINKING [None]
  - TIC [None]
